FAERS Safety Report 15871115 (Version 1)
Quarter: 2019Q1

REPORT INFORMATION
  Report Type: Report from Study
  Country: None (occurrence: US)
  Receive Date: 20190126
  Receipt Date: 20190126
  Transmission Date: 20190417
  Serious: Yes (Hospitalization, Other)
  Sender: FDA-Public Use
  Company Number: US-ABBVIE-19K-163-2633951-00

PATIENT
  Sex: Male

DRUGS (1)
  1. HUMIRA [Suspect]
     Active Substance: ADALIMUMAB
     Indication: COLITIS ULCERATIVE
     Route: 058

REACTIONS (5)
  - Peripheral arterial occlusive disease [Recovered/Resolved]
  - Vascular graft [Recovered/Resolved]
  - Hypoaesthesia [Recovered/Resolved]
  - Post procedural haemorrhage [Recovered/Resolved]
  - Prostatic operation [Recovered/Resolved]
